FAERS Safety Report 6842060-4 (Version None)
Quarter: 2010Q3

REPORT INFORMATION
  Report Type: 
  Country: None (occurrence: None)
  Receive Date: 20100714
  Receipt Date: 20070719
  Transmission Date: 20110219
  Serious: No
  Sender: FDA-Public Use
  Company Number: US-PFIZER INC-2007061441

PATIENT
  Sex: Female
  Weight: 79.4 kg

DRUGS (7)
  1. CHANTIX [Suspect]
     Indication: SMOKING CESSATION THERAPY
     Route: 048
     Dates: start: 20070715
  2. VITAMINS [Concomitant]
  3. OMEGA-3 TRIGLYCERIDES [Concomitant]
  4. MONTELUKAST SODIUM [Concomitant]
  5. ALBUTEROL [Concomitant]
  6. KLONOPIN [Concomitant]
     Indication: ANXIETY
  7. WELLBUTRIN [Concomitant]
     Indication: SMOKING CESSATION THERAPY

REACTIONS (1)
  - CRYING [None]
